FAERS Safety Report 10085109 (Version 1)
Quarter: 2014Q2

REPORT INFORMATION
  Report Type: Spontaneous
  Country: US (occurrence: US)
  Receive Date: 20140417
  Receipt Date: 20140417
  Transmission Date: 20141212
  Serious: Yes (Other)
  Sender: FDA-Public Use
  Company Number: CHPA2014US005427

PATIENT
  Age: 61 Year
  Sex: Female

DRUGS (4)
  1. GAS-X REGULAR STRENGTH [Suspect]
     Indication: FLATULENCE
     Dosage: UNK
     Route: 048
  2. GAS-X REGULAR STRENGTH [Suspect]
     Indication: OFF LABEL USE
  3. NEXIUM//ESOMEPRAZOLE MAGNESIUM [Concomitant]
  4. PANTOPRAZOLE [Concomitant]
     Indication: GASTROOESOPHAGEAL REFLUX DISEASE
     Route: 065

REACTIONS (1)
  - Diabetes mellitus [Not Recovered/Not Resolved]
